FAERS Safety Report 23857450 (Version 3)
Quarter: 2024Q3

REPORT INFORMATION
  Report Type: Report from Study
  Country: CA (occurrence: CA)
  Receive Date: 20240515
  Receipt Date: 20240717
  Transmission Date: 20241017
  Serious: Yes (Hospitalization, Other)
  Sender: AMGEN
  Company Number: CA-AMGEN-CANSL2024006352

PATIENT
  Age: 74 Year
  Sex: Male

DRUGS (2)
  1. ADALIMUMAB [Suspect]
     Active Substance: ADALIMUMAB\ISOPROPYL ALCOHOL
     Indication: Crohn^s disease
     Dosage: 40 MILLIGRAM, QWK
     Route: 065
     Dates: start: 20211115
  2. ADALIMUMAB [Suspect]
     Active Substance: ADALIMUMAB\ISOPROPYL ALCOHOL
     Dosage: 40 MILLIGRAM, QWK
     Route: 065

REACTIONS (17)
  - Intestinal obstruction [Recovering/Resolving]
  - Gastrointestinal disorder [Unknown]
  - Suicidal ideation [Unknown]
  - Renal impairment [Unknown]
  - Urinary tract infection [Unknown]
  - Constipation [Not Recovered/Not Resolved]
  - Depression [Unknown]
  - Abscess limb [Unknown]
  - Tremor [Not Recovered/Not Resolved]
  - Renal disorder [Unknown]
  - Food intolerance [Unknown]
  - Flank pain [Not Recovered/Not Resolved]
  - Weight decreased [Unknown]
  - Malaise [Unknown]
  - Back pain [Unknown]
  - Hernia [Unknown]
  - Nerve compression [Unknown]

NARRATIVE: CASE EVENT DATE: 20240201
